FAERS Safety Report 15977109 (Version 2)
Quarter: 2019Q1

REPORT INFORMATION
  Report Type: Spontaneous
  Country: ES (occurrence: ES)
  Receive Date: 20190218
  Receipt Date: 20190312
  Transmission Date: 20190418
  Serious: Yes (Other)
  Sender: FDA-Public Use
  Company Number: ES-TAKEDA-2019TUS006393

PATIENT
  Age: 13 Year
  Sex: Male

DRUGS (2)
  1. AZATHIOPRINE. [Concomitant]
     Active Substance: AZATHIOPRINE
     Dosage: UNK
     Dates: start: 201408
  2. ENTYVIO [Suspect]
     Active Substance: VEDOLIZUMAB
     Indication: COLITIS ULCERATIVE
     Dosage: 6 MILLIGRAM/KILOGRAM
     Route: 065
     Dates: start: 201802

REACTIONS (5)
  - Therapeutic reaction time decreased [Unknown]
  - Product use issue [Unknown]
  - Colitis ulcerative [Unknown]
  - Off label use [Unknown]
  - Chronic gastritis [Unknown]

NARRATIVE: CASE EVENT DATE: 201802
